FAERS Safety Report 5665154-8 (Version None)
Quarter: 2008Q1

REPORT INFORMATION
  Report Type: 
  Country: None (occurrence: None)
  Receive Date: 20080314
  Receipt Date: 20080228
  Transmission Date: 20080703
  Serious: Yes (Hospitalization)
  Sender: FDA-Public Use
  Company Number: FR-GENENTECH-256851

PATIENT
  Age: 85 Year
  Sex: Female

DRUGS (1)
  1. LUCENTIS [Suspect]
     Indication: MACULAR DEGENERATION
     Dosage: 1 UNK, UNK
     Route: 031
     Dates: start: 20071210

REACTIONS (1)
  - ANAEMIA [None]
